FAERS Safety Report 8787225 (Version 2)
Quarter: 2013Q1

REPORT INFORMATION
  Report Type: Spontaneous
  Country: IL (occurrence: IL)
  Receive Date: 20120914
  Receipt Date: 20130121
  Transmission Date: 20140127
  Serious: Yes (Death, Hospitalization)
  Sender: FDA-Public Use
  Company Number: IL-ELI_LILLY_AND_COMPANY-IL201209002230

PATIENT
  Sex: Female
  Weight: 63 kg

DRUGS (3)
  1. FORTEO [Suspect]
     Indication: OSTEOPOROSIS
     Dosage: 20 UG, QD
     Route: 058
     Dates: start: 20120509, end: 20120608
  2. ASPIRIN [Concomitant]
  3. DIOVAN [Concomitant]

REACTIONS (5)
  - Death [Fatal]
  - Pelvic fracture [Unknown]
  - Fall [Unknown]
  - Pyrexia [Unknown]
  - Weight decreased [Unknown]
